FAERS Safety Report 5578285-8 (Version None)
Quarter: 2007Q4

REPORT INFORMATION
  Report Type: 
  Country: None (occurrence: None)
  Receive Date: 20071231
  Receipt Date: 20071220
  Transmission Date: 20080405
  Serious: Yes (Hospitalization, Other)
  Sender: FDA-Public Use
  Company Number: US-PFIZER INC-2007107238

PATIENT
  Sex: Female
  Weight: 63 kg

DRUGS (3)
  1. AROMASIN [Suspect]
     Indication: BREAST CANCER
     Route: 048
     Dates: start: 20070101, end: 20071101
  2. VITAMINS [Concomitant]
  3. DRUG, UNSPECIFIED [Concomitant]

REACTIONS (5)
  - DECREASED APPETITE [None]
  - DYSPNOEA [None]
  - HEART RATE INCREASED [None]
  - MEMORY IMPAIRMENT [None]
  - NAUSEA [None]
